FAERS Safety Report 9267114 (Version 3)
Quarter: 2013Q2

REPORT INFORMATION
  Report Type: Spontaneous
  Country: TR (occurrence: TR)
  Receive Date: 20130502
  Receipt Date: 20130510
  Transmission Date: 20140414
  Serious: Yes (Death)
  Sender: FDA-Public Use
  Company Number: TR-PFIZER INC-2013134142

PATIENT
  Age: 62 Year
  Sex: Female

DRUGS (1)
  1. SUNITINIB MALATE [Suspect]
     Indication: INSULINOMA
     Dosage: 37.5 MG, 1X/DAY
     Route: 048
     Dates: start: 20120912

REACTIONS (2)
  - Sepsis [Fatal]
  - Respiratory failure [Fatal]
